FAERS Safety Report 15964930 (Version 1)
Quarter: 2019Q1

REPORT INFORMATION
  Report Type: Report from Study
  Country: BR (occurrence: BR)
  Receive Date: 20190215
  Receipt Date: 20190215
  Transmission Date: 20190418
  Serious: Yes (Death, Hospitalization)
  Sender: FDA-Public Use
  Company Number: BR-ROCHE-1835701

PATIENT
  Sex: Female

DRUGS (5)
  1. MABTHERA [Suspect]
     Active Substance: RITUXIMAB
     Route: 042
     Dates: start: 20171130
  2. ACTEMRA [Suspect]
     Active Substance: TOCILIZUMAB
     Indication: PRODUCT USED FOR UNKNOWN INDICATION
     Route: 065
     Dates: start: 20150105, end: 20160629
  3. AEROLIN [Concomitant]
     Active Substance: ALBUTEROL
     Route: 050
  4. MABTHERA [Suspect]
     Active Substance: RITUXIMAB
     Indication: RHEUMATOID ARTHRITIS
     Dosage: MOST RECENT DOSE ON 28/JUN/2018
     Route: 042
     Dates: start: 20160908
  5. MABTHERA [Suspect]
     Active Substance: RITUXIMAB
     Route: 042
     Dates: start: 20180614

REACTIONS (5)
  - Pneumonia [Recovering/Resolving]
  - Bronchospasm [Unknown]
  - Chronic obstructive pulmonary disease [Fatal]
  - Pneumonia bacterial [Fatal]
  - Sepsis [Fatal]

NARRATIVE: CASE EVENT DATE: 2016
